FAERS Safety Report 17087089 (Version 1)
Quarter: 2019Q4

REPORT INFORMATION
  Report Type: Spontaneous
  Country: AT (occurrence: AT)
  Receive Date: 20191128
  Receipt Date: 20191128
  Transmission Date: 20200122
  Serious: Yes (Other)
  Sender: FDA-Public Use
  Company Number: AT-AMGEN-AUTSP2019160296

PATIENT
  Sex: Female

DRUGS (1)
  1. AIMOVIG [Suspect]
     Active Substance: ERENUMAB-AOOE
     Indication: MIGRAINE
     Dosage: 70 MILLIGRAM
     Route: 058
     Dates: start: 20190703

REACTIONS (5)
  - Intestinal obstruction [Recovered/Resolved]
  - Pruritus [Unknown]
  - Constipation [Recovered/Resolved]
  - Gastric dilatation [Unknown]
  - Abdominal distension [Recovered/Resolved]
